FAERS Safety Report 9013508 (Version 1)
Quarter: 2013Q1

REPORT INFORMATION
  Report Type: Spontaneous
  Country: US (occurrence: US)
  Receive Date: 20130115
  Receipt Date: 20130115
  Transmission Date: 20140127
  Serious: Yes (Hospitalization)
  Sender: FDA-Public Use
  Company Number: US-BAYER-2013-004445

PATIENT
  Age: 24 Year
  Sex: Female
  Weight: 145.58 kg

DRUGS (10)
  1. YAZ [Suspect]
     Dosage: UNK
     Route: 048
  2. YASMIN [Suspect]
     Dosage: UNK
     Route: 048
  3. TYLENOL [Concomitant]
     Dosage: UNK
     Dates: start: 20061117
  4. AUGMENTIN [Concomitant]
     Indication: BRONCHITIS
     Dosage: 875 MG, TWICE A DAY
  5. CARDIZEM CD [Concomitant]
     Dosage: UNK
  6. FERROUS SULFATE [Concomitant]
     Dosage: UNK
  7. SENOKOT [Concomitant]
     Dosage: UNK
  8. OXYCONTIN [Concomitant]
     Dosage: UNK
  9. OXYCODONE [Concomitant]
     Dosage: UNK
  10. FIORICET [Concomitant]
     Dosage: UNK

REACTIONS (2)
  - Pulmonary embolism [Recovering/Resolving]
  - Deep vein thrombosis [Recovered/Resolved]
